FAERS Safety Report 6773323-9 (Version None)
Quarter: 2010Q2

REPORT INFORMATION
  Report Type: 
  Country: None (occurrence: None)
  Receive Date: 20100616
  Receipt Date: 20100607
  Transmission Date: 20101027
  Serious: Yes (Death, Hospitalization)
  Sender: FDA-Public Use
  Company Number: UY-ABBOTT-10P-168-0647216-00

PATIENT
  Age: 69 Year
  Sex: Male
  Weight: 70 kg

DRUGS (6)
  1. HUMIRA [Suspect]
     Indication: PUSTULAR PSORIASIS
     Route: 058
     Dates: start: 20090801, end: 20100324
  2. HUMIRA [Suspect]
     Indication: PSORIATIC ARTHROPATHY
  3. CYCLOSPORINE [Concomitant]
     Indication: DRUG USE FOR UNKNOWN INDICATION
     Dosage: DECEREASE DOSE
  4. CYCLOSPORINE [Concomitant]
  5. CYCLOSPORINE [Concomitant]
  6. CYCLOSPORINE [Concomitant]

REACTIONS (3)
  - HYPOVOLAEMIC SHOCK [None]
  - PYREXIA [None]
  - TUBERCULOSIS [None]
